FAERS Safety Report 13508879 (Version 2)
Quarter: 2017Q3

REPORT INFORMATION
  Report Type: Report from Study
  Country: US (occurrence: US)
  Receive Date: 20170503
  Receipt Date: 20170713
  Transmission Date: 20171127
  Serious: Yes (Other)
  Sender: FDA-Public Use
  Company Number: US-AMGEN-USASL2017066985

PATIENT
  Age: 40 Year
  Sex: Female

DRUGS (1)
  1. ENBREL [Suspect]
     Active Substance: ETANERCEPT
     Indication: ANKYLOSING SPONDYLITIS
     Dosage: UNK, QWK
     Route: 065
     Dates: end: 201704

REACTIONS (4)
  - Lupus-like syndrome [Not Recovered/Not Resolved]
  - Migraine [Unknown]
  - Palpitations [Unknown]
  - Unevaluable event [Unknown]

NARRATIVE: CASE EVENT DATE: 201704
